FAERS Safety Report 9448124 (Version 1)
Quarter: 2013Q3

REPORT INFORMATION
  Report Type: Spontaneous
  Country: US (occurrence: US)
  Receive Date: 20130808
  Receipt Date: 20130808
  Transmission Date: 20140515
  Serious: Yes (Hospitalization)
  Sender: FDA-Public Use
  Company Number: US-FRI-1000047562

PATIENT
  Age: 55 Year
  Sex: Female

DRUGS (1)
  1. LINZESS [Suspect]
     Indication: IRRITABLE BOWEL SYNDROME
     Dosage: 290MCG
     Route: 048
     Dates: start: 2013, end: 20130731

REACTIONS (2)
  - Movement disorder [Recovered/Resolved]
  - Balance disorder [Recovered/Resolved]
